FAERS Safety Report 19983200 (Version 2)
Quarter: 2021Q4

REPORT INFORMATION
  Report Type: Spontaneous
  Country: US (occurrence: US)
  Receive Date: 20211021
  Receipt Date: 20211109
  Transmission Date: 20220303
  Serious: No
  Sender: FDA-Public Use
  Company Number: US-JNJFOC-20211021214

PATIENT
  Age: 34 Year
  Sex: Male

DRUGS (1)
  1. MENS ROGAINE EXTRA STRENGTH [Suspect]
     Active Substance: MINOXIDIL
     Indication: Alopecia
     Dosage: 1ML 2 TIMES A DAY
     Route: 061
     Dates: start: 20210911, end: 20211011

REACTIONS (1)
  - Hair colour changes [Recovered/Resolved]

NARRATIVE: CASE EVENT DATE: 20210912
